FAERS Safety Report 9507271 (Version 2)
Quarter: 2013Q3

REPORT INFORMATION
  Report Type: Spontaneous
  Country: NO (occurrence: NO)
  Receive Date: 20130909
  Receipt Date: 20130909
  Transmission Date: 20140515
  Serious: Yes (Hospitalization)
  Sender: FDA-Public Use
  Company Number: NO-IPSEN BIOPHARMACEUTICALS, INC.-2013-3255

PATIENT
  Age: 60 Year
  Sex: Female

DRUGS (7)
  1. AZZALURE (BOTULINUM TOXIN TYPE A) (BOTULINUM TOXIN TYPE A) [Suspect]
     Indication: SKIN WRINKLING
     Dosage: 110 UNITS
     Route: 030
     Dates: start: 20130620, end: 20130620
  2. AZZALURE (BOTULINUM TOXIN TYPE A) (BOTULINUM TOXIN TYPE A) [Suspect]
     Indication: SKIN WRINKLING
  3. AZZALURE (BOTULINUM TOXIN TYPE A) (BOTULINUM TOXIN TYPE A) [Suspect]
     Indication: SKIN WRINKLING
  4. AZZALURE (BOTULINUM TOXIN TYPE A) (BOTULINUM TOXIN TYPE A) [Suspect]
     Indication: SKIN WRINKLING
  5. AZZALURE (BOTULINUM TOXIN TYPE A) (BOTULINUM TOXIN TYPE A) [Suspect]
     Indication: OFF LABEL USE
  6. RESTYLANE VITAL LIGHT [Suspect]
     Indication: SKIN COSMETIC PROCEDURE
     Dosage: 0.6ML
     Route: 065
     Dates: start: 20130620, end: 20130620
  7. RESTYLANE [Suspect]
     Indication: SKIN WRINKLING
     Dosage: 2ML
     Route: 065
     Dates: start: 20130620, end: 20130620

REACTIONS (1)
  - Skin infection [Not Recovered/Not Resolved]
